FAERS Safety Report 19956320 (Version 1)
Quarter: 2021Q4

REPORT INFORMATION
  Report Type: Report from Study
  Country: None (occurrence: RO)
  Receive Date: 20211014
  Receipt Date: 20211014
  Transmission Date: 20220303
  Serious: Yes (Hospitalization)
  Sender: FDA-Public Use
  Company Number: RO-ABBVIE-21K-135-4118606-00

PATIENT
  Age: 75 Year
  Sex: Male

DRUGS (1)
  1. SKYRIZI [Suspect]
     Active Substance: RISANKIZUMAB-RZAA
     Indication: Psoriasis
     Route: 058
     Dates: start: 20210706, end: 202110

REACTIONS (5)
  - Myalgia [Recovering/Resolving]
  - Respiratory disorder [Recovering/Resolving]
  - Ageusia [Recovering/Resolving]
  - Anosmia [Recovering/Resolving]
  - COVID-19 [Recovering/Resolving]

NARRATIVE: CASE EVENT DATE: 20210901
